FAERS Safety Report 5860859-8 (Version None)
Quarter: 2008Q3

REPORT INFORMATION
  Report Type: 
  Country: None (occurrence: None)
  Receive Date: 20080827
  Receipt Date: 20080122
  Transmission Date: 20090109
  Serious: No
  Sender: FDA-Public Use
  Company Number: US-ABBOTT-07P-163-0427921-00

PATIENT
  Sex: Male
  Weight: 84.444 kg

DRUGS (6)
  1. COATED PDS [Suspect]
     Indication: LIPIDS INCREASED
     Route: 048
     Dates: start: 20071016
  2. WARFARIN SODIUM [Concomitant]
     Indication: THROMBOSIS
     Route: 048
  3. LOSARTAN POTASSIUM [Concomitant]
     Indication: DRUG USE FOR UNKNOWN INDICATION
     Route: 048
  4. MYSELENE [Concomitant]
     Indication: TREMOR
  5. CARVEDILOL [Concomitant]
     Indication: DRUG USE FOR UNKNOWN INDICATION
     Route: 048
  6. LANSOPRAZOLE [Concomitant]
     Indication: GASTROOESOPHAGEAL REFLUX DISEASE
     Route: 048

REACTIONS (1)
  - FLUSHING [None]
